FAERS Safety Report 19078819 (Version 1)
Quarter: 2021Q1

REPORT INFORMATION
  Report Type: Spontaneous
  Country: VN (occurrence: VN)
  Receive Date: 20210331
  Receipt Date: 20210331
  Transmission Date: 20210420
  Serious: Yes (Other)
  Sender: FDA-Public Use
  Company Number: VN-INCYTE CORPORATION-2019IN013610

PATIENT

DRUGS (2)
  1. JAKAVI [Suspect]
     Active Substance: RUXOLITINIB
     Indication: MYELOFIBROSIS
     Dosage: 15 MG, BID
     Route: 065
     Dates: start: 201903, end: 201908
  2. JAKAVI [Suspect]
     Active Substance: RUXOLITINIB
     Dosage: 20 MG, QD
     Route: 065
     Dates: start: 201908, end: 201910

REACTIONS (7)
  - Fibrosis [Unknown]
  - Fatigue [Unknown]
  - Pancytopenia [Unknown]
  - Platelet count decreased [Unknown]
  - Decreased appetite [Unknown]
  - Night sweats [Unknown]
  - Bone marrow myelogram abnormal [Unknown]

NARRATIVE: CASE EVENT DATE: 2019
